FAERS Safety Report 5888710-0 (Version None)
Quarter: 2008Q3

REPORT INFORMATION
  Report Type: 
  Country: None (occurrence: None)
  Receive Date: 20080917
  Receipt Date: 20080902
  Transmission Date: 20090109
  Serious: Yes (Other)
  Sender: FDA-Public Use
  Company Number: SPV1-2008-01451

PATIENT
  Age: 70 Year
  Sex: Male
  Weight: 73 kg

DRUGS (3)
  1. ANAGRELIDE HYDROCHLORIDE [Suspect]
     Indication: POLYCYTHAEMIA VERA
     Dosage: 2 MG UNKNOWN UNKNOWN
     Dates: start: 20000601, end: 20080501
  2. ASPIRIN [Concomitant]
  3. L-THYROXINE /00068001/ (LEVOTHYROXINE) [Concomitant]

REACTIONS (3)
  - CONDITION AGGRAVATED [None]
  - PARKINSON'S DISEASE [None]
  - VITILIGO [None]
